FAERS Safety Report 6125473-8 (Version None)
Quarter: 2009Q1

REPORT INFORMATION
  Report Type: 
  Country: None (occurrence: None)
  Receive Date: 20090318
  Receipt Date: 20090313
  Transmission Date: 20090719
  Serious: Yes (Hospitalization)
  Sender: FDA-Public Use
  Company Number: GXKR2009DE03145

PATIENT
  Age: 84 Year
  Sex: Male
  Weight: 82 kg

DRUGS (7)
  1. TORSEMIDE [Suspect]
     Indication: OEDEMA PERIPHERAL
     Dosage: 10 MG, QD, ORAL
     Route: 048
     Dates: end: 20090115
  2. THEOPHYLLINE [Suspect]
     Indication: CHRONIC OBSTRUCTIVE PULMONARY DISEASE
     Dosage: 250 MG, BID, ORAL
     Route: 048
     Dates: start: 19880101
  3. ALLOPURINOL [Concomitant]
  4. ISMN ^GENERICON^ (ISOSORBIDE MONONITRATE) [Concomitant]
  5. MUCOFALK (PSYLLIUM HYDROPHILIC MUCILLOID) [Concomitant]
  6. PANTOPRAZOLE SODIUM [Concomitant]
  7. TAMSULOSIN HCL [Concomitant]

REACTIONS (2)
  - DRUG INTERACTION [None]
  - VENOUS THROMBOSIS [None]
